FAERS Safety Report 6839399-5 (Version None)
Quarter: 2010Q2

REPORT INFORMATION
  Report Type: 
  Country: None (occurrence: None)
  Receive Date: 20100629
  Receipt Date: 20100413
  Transmission Date: 20101027
  Serious: No
  Sender: FDA-Public Use
  Company Number: US-WYE-H14593410

PATIENT
  Sex: Female

DRUGS (1)
  1. PRISTIQ [Suspect]
     Dosage: TOOK AN EXTRA DOSE
     Dates: start: 20100101, end: 20100101

REACTIONS (2)
  - INCORRECT DOSE ADMINISTERED [None]
  - MEDICATION RESIDUE [None]
